FAERS Safety Report 20581907 (Version 1)
Quarter: 2022Q1

REPORT INFORMATION
  Report Type: Spontaneous
  Country: US (occurrence: US)
  Receive Date: 20220311
  Receipt Date: 20220311
  Transmission Date: 20220423
  Serious: No
  Sender: FDA-Public Use
  Company Number: US-CIPLA LTD.-2021US06570

PATIENT

DRUGS (1)
  1. SERTRALINE [Suspect]
     Active Substance: SERTRALINE HYDROCHLORIDE
     Indication: Anxiety
     Dosage: 50 MILLIGRAM, QD (EVERY MORNING)
     Route: 065
     Dates: start: 20200923, end: 20210803

REACTIONS (6)
  - Mental disorder [Not Recovered/Not Resolved]
  - Behaviour disorder [Unknown]
  - Depression [Unknown]
  - Panic attack [Not Recovered/Not Resolved]
  - Amnesia [Unknown]
  - Drug hypersensitivity [Unknown]
